FAERS Safety Report 17183833 (Version 1)
Quarter: 2019Q4

REPORT INFORMATION
  Report Type: Spontaneous
  Country: US (occurrence: US)
  Receive Date: 20191219
  Receipt Date: 20191219
  Transmission Date: 20200122
  Serious: Yes (Other)
  Sender: FDA-Public Use
  Company Number: None

PATIENT
  Age: 43 Year
  Sex: Female
  Weight: 90 kg

DRUGS (1)
  1. WALGREENS PAIN RELIEVING CREAM [Suspect]
     Active Substance: CAMPHOR (SYNTHETIC)\MENTHOL\METHYL SALICYLATE
     Indication: NECK PAIN
     Route: 061
     Dates: start: 20191218, end: 20191218

REACTIONS (5)
  - Urticaria [None]
  - Skin exfoliation [None]
  - Pain [None]
  - Blister [None]
  - Skin weeping [None]

NARRATIVE: CASE EVENT DATE: 20191218
